FAERS Safety Report 5794643-0 (Version None)
Quarter: 2008Q2

REPORT INFORMATION
  Report Type: 
  Country: None (occurrence: None)
  Receive Date: 20080626
  Receipt Date: 20080619
  Transmission Date: 20081010
  Serious: Yes (Other)
  Sender: FDA-Public Use
  Company Number: 2008-02024

PATIENT
  Age: 57 Year
  Sex: Female
  Weight: 76 kg

DRUGS (2)
  1. VELCADE [Suspect]
     Indication: MULTIPLE MYELOMA
     Dosage: 1.3 MG/M2, INTRAVENOUS
     Route: 042
     Dates: start: 20080522
  2. DEXAMETHASONE [Concomitant]

REACTIONS (2)
  - DERMATITIS EXFOLIATIVE [None]
  - PYREXIA [None]
